FAERS Safety Report 9910166 (Version 1)
Quarter: 2014Q1

REPORT INFORMATION
  Report Type: Spontaneous
  Country: DE (occurrence: DE)
  Receive Date: 20140219
  Receipt Date: 20140219
  Transmission Date: 20141002
  Serious: Yes (Hospitalization)
  Sender: FDA-Public Use
  Company Number: DE-ABBVIE-14P-062-1201704-00

PATIENT
  Sex: Female

DRUGS (2)
  1. HUMIRA [Suspect]
     Indication: PSORIASIS
     Dosage: INITIAL DOSE
     Route: 058
  2. HUMIRA [Suspect]
     Route: 058

REACTIONS (2)
  - Circulatory collapse [Not Recovered/Not Resolved]
  - Dizziness [Not Recovered/Not Resolved]
